FAERS Safety Report 11531499 (Version 2)
Quarter: 2015Q3

REPORT INFORMATION
  Report Type: Report from Study
  Country: AU (occurrence: AU)
  Receive Date: 20150921
  Receipt Date: 20150924
  Transmission Date: 20151125
  Serious: Yes (Death)
  Sender: FDA-Public Use
  Company Number: PHHY2015AU113118

PATIENT
  Sex: Male

DRUGS (1)
  1. CLOZARIL [Suspect]
     Active Substance: CLOZAPINE
     Indication: SCHIZOPHRENIA
     Dosage: 250 OT, UNK
     Route: 048
     Dates: start: 20140115

REACTIONS (2)
  - Brain neoplasm malignant [Fatal]
  - Lung neoplasm malignant [Fatal]
